FAERS Safety Report 8681392 (Version 2)
Quarter: 2013Q1

REPORT INFORMATION
  Report Type: Report from Study
  Country: US (occurrence: US)
  Receive Date: 20120725
  Receipt Date: 20130123
  Transmission Date: 20140127
  Serious: Yes (Other)
  Sender: FDA-Public Use
  Company Number: US-JNJFOC-20120710713

PATIENT
  Sex: 0

DRUGS (9)
  1. DOXORUBICIN HYDROCHLORIDE (DOXIL) [Suspect]
     Indication: LYMPHOMA AIDS RELATED
     Dosage: ON DAY 1
     Route: 042
  2. RITUXIMAB [Suspect]
     Indication: LYMPHOMA AIDS RELATED
     Route: 042
  3. CYCLOPHOSPHAMIDE [Suspect]
     Indication: LYMPHOMA AIDS RELATED
     Route: 042
  4. VINCRISTINE [Suspect]
     Indication: LYMPHOMA AIDS RELATED
     Dosage: NOT MORE THAN 2 MG
     Route: 042
  5. PREDNISONE [Suspect]
     Indication: LYMPHOMA AIDS RELATED
     Dosage: DAYS 1-5 OF EACH CYCLE
     Route: 048
  6. G-CSF [Concomitant]
     Indication: PALLIATIVE CARE
     Route: 065
  7. GM-CSF [Concomitant]
     Indication: PALLIATIVE CARE
     Route: 065
  8. UNKNOWN MEDICATION [Concomitant]
     Indication: ANTIFUNGAL PROPHYLAXIS
     Route: 065
  9. ANTIRETROVIRAL MEDICATIONS [Concomitant]
     Indication: HIV INFECTION
     Route: 065

REACTIONS (1)
  - Lung infection [Unknown]
